FAERS Safety Report 6361871-5 (Version None)
Quarter: 2009Q3

REPORT INFORMATION
  Report Type: 
  Country: None (occurrence: None)
  Receive Date: 20090821
  Receipt Date: 20090708
  Transmission Date: 20100115
  Serious: No
  Sender: FDA-Public Use
  Company Number: 8048791

PATIENT
  Age: 19 Year
  Sex: Female

DRUGS (1)
  1. CIMZIA [Suspect]
     Dosage: 400 MG
     Dates: start: 20090618

REACTIONS (2)
  - INFECTION [None]
  - WEIGHT DECREASED [None]
